FAERS Safety Report 19821566 (Version 4)
Quarter: 2022Q1

REPORT INFORMATION
  Report Type: Report from Study
  Country: ES (occurrence: ES)
  Receive Date: 20210913
  Receipt Date: 20220128
  Transmission Date: 20220424
  Serious: Yes (Other)
  Sender: FDA-Public Use
  Company Number: ES-CELGENE-ESP-20210900115

PATIENT
  Age: 49 Year
  Sex: Male
  Weight: 80.2 kg

DRUGS (14)
  1. INVESTIGATIONAL PRODUCT [Suspect]
     Active Substance: INVESTIGATIONAL PRODUCT
     Indication: Plasma cell myeloma
     Dosage: 403.05 X 10^6 CAR + T CELLS
     Route: 041
     Dates: start: 20210826, end: 20210826
  2. FLUDARABINE [Suspect]
     Active Substance: FLUDARABINE PHOSPHATE
     Indication: Plasma cell myeloma
     Dosage: 57 MILLIGRAM
     Route: 041
     Dates: start: 20210821, end: 20210823
  3. CYCLOPHOSPHAMIDE [Suspect]
     Active Substance: CYCLOPHOSPHAMIDE
     Indication: Plasma cell myeloma
     Dosage: 570 MILLIGRAM
     Route: 041
     Dates: start: 20210821, end: 20210823
  4. Trimethoprim/sulfametoxazole [Concomitant]
     Indication: Infection prophylaxis
     Dosage: 160/800
     Route: 065
  5. ACYCLOVIR [Concomitant]
     Active Substance: ACYCLOVIR
     Indication: Antiviral prophylaxis
     Dosage: 800
     Route: 065
  6. ACETAMINOPHEN [Concomitant]
     Active Substance: ACETAMINOPHEN
     Indication: Pain prophylaxis
     Dosage: 1000
     Route: 065
     Dates: start: 20210704
  7. ACETAMINOPHEN [Concomitant]
     Active Substance: ACETAMINOPHEN
     Indication: Spinal cord compression
     Dosage: 1
     Route: 065
     Dates: start: 20210811, end: 20210816
  8. OXYCODONE [Concomitant]
     Active Substance: OXYCODONE
     Indication: Bone pain
     Dosage: 2
     Route: 065
     Dates: start: 20210802
  9. Puntualsenna [Concomitant]
     Indication: Constipation
     Dosage: 15
     Route: 065
     Dates: start: 20210802
  10. CASENLAX [Concomitant]
     Indication: Constipation
     Dosage: 10000
     Route: 065
     Dates: start: 20210802
  11. MORPHINE [Concomitant]
     Active Substance: MORPHINE
     Indication: Spinal cord compression
     Dosage: 10
     Route: 065
     Dates: start: 20210811, end: 20210813
  12. FENTANYL [Concomitant]
     Active Substance: FENTANYL
     Indication: Pain prophylaxis
     Dosage: 1
     Route: 065
     Dates: start: 20210704
  13. MUPIROCIN [Concomitant]
     Active Substance: MUPIROCIN
     Indication: Central venous catheter removal
     Dosage: 1
     Route: 065
     Dates: start: 20210704
  14. ALLOPURINOL [Concomitant]
     Active Substance: ALLOPURINOL
     Indication: Prophylaxis
     Dosage: 300 MILLIGRAM
     Route: 065
     Dates: start: 20210820, end: 20210826

REACTIONS (3)
  - Tumour lysis syndrome [Recovered/Resolved]
  - Haemophagocytic lymphohistiocytosis [Recovered/Resolved]
  - Aspartate aminotransferase increased [Recovered/Resolved]

NARRATIVE: CASE EVENT DATE: 20210831
